FAERS Safety Report 26046557 (Version 1)
Quarter: 2025Q4

REPORT INFORMATION
  Report Type: Other
  Country: CA (occurrence: CA)
  Receive Date: 20251114
  Receipt Date: 20251114
  Transmission Date: 20260117
  Serious: Yes (Life-Threatening, Other)
  Sender: APOTEX
  Company Number: CA-PGRTD-001156089

PATIENT
  Age: 1 Year
  Sex: Male
  Weight: 10.52 kg

DRUGS (2)
  1. BUSULFAN [Suspect]
     Active Substance: BUSULFAN
     Indication: Bone marrow conditioning regimen
     Dosage: EVERY 3 HOURS
     Route: 042
  2. MELPHALAN [Suspect]
     Active Substance: MELPHALAN
     Indication: Bone marrow conditioning regimen
     Dosage: EVERY 30 MINUTES
     Route: 042

REACTIONS (5)
  - Transfusion [Unknown]
  - Aplastic anaemia [Unknown]
  - Mucosal inflammation [Unknown]
  - Thrombocytopenia [Unknown]
  - Febrile neutropenia [Unknown]
